FAERS Safety Report 16187603 (Version 2)
Quarter: 2019Q3

REPORT INFORMATION
  Report Type: Report from Study
  Country: US (occurrence: US)
  Receive Date: 20190412
  Receipt Date: 20190904
  Transmission Date: 20191004
  Serious: Yes (Other)
  Sender: FDA-Public Use
  Company Number: US-ROCHE-2300195

PATIENT
  Sex: Male

DRUGS (1)
  1. RITUXAN [Suspect]
     Active Substance: RITUXIMAB
     Indication: PEMPHIGOID
     Dosage: INFUSE 1000MG ON DAY(S) 1 AND DAY(S) 15 THEN EVERY
     Route: 065

REACTIONS (3)
  - Off label use [Unknown]
  - Pemphigoid [Unknown]
  - Intentional product use issue [Unknown]
